FAERS Safety Report 4656744-X (Version None)
Quarter: 2005Q2

REPORT INFORMATION
  Report Type: 
  Country: None (occurrence: None)
  Receive Date: 20050408
  Receipt Date: 20050219
  Transmission Date: 20051028
  Serious: No
  Sender: FDA-Public Use
  Company Number: 230638K05USA

PATIENT
  Age: 44 Year
  Sex: Female

DRUGS (3)
  1. REIBIF (INTERFERON BETA) [Suspect]
     Indication: MULTIPLE SCLEROSIS
     Dates: start: 20050101, end: 20050201
  2. PLAQUENIL [Concomitant]
  3. DIAZOXIDE [Concomitant]

REACTIONS (2)
  - DERMATITIS EXFOLIATIVE [None]
  - URTICARIA [None]
